FAERS Safety Report 7540860-9 (Version None)
Quarter: 2011Q2

REPORT INFORMATION
  Report Type: 
  Country: None (occurrence: None)
  Receive Date: 20110610
  Receipt Date: 20110530
  Transmission Date: 20111010
  Serious: Yes (Other)
  Sender: FDA-Public Use
  Company Number: FR-B.I. PHARMACEUTICALS,INC./RIDGEFIELD-2011-FF-00116FF

PATIENT
  Sex: Female
  Weight: 70 kg

DRUGS (11)
  1. NEXIUM [Concomitant]
  2. PRADAXA [Suspect]
     Indication: THROMBOSIS PROPHYLAXIS
     Dosage: 110 MG
     Route: 048
     Dates: start: 20101115, end: 20101115
  3. SIMVASTATIN [Concomitant]
  4. SPIRIVA [Concomitant]
     Dosage: 18 MCG
     Route: 055
  5. KETOPROFEN [Concomitant]
     Dosage: 100 MG
     Dates: start: 20101115, end: 20101117
  6. PAROXETINE HCL [Concomitant]
     Dosage: 20 MG
  7. IRBESARTAN AND HYDROCHLOROTHIAZIDE [Concomitant]
     Dosage: 300 MG
  8. ARIXTRA [Concomitant]
     Dosage: 2.5 MG
     Dates: start: 20101104, end: 20101114
  9. AMLODIPINE [Concomitant]
     Dosage: 5 MG
  10. PRADAXA [Suspect]
     Indication: KNEE ARTHROPLASTY
     Dosage: 220 MG
     Route: 048
     Dates: start: 20101116, end: 20101205
  11. LYRICA [Concomitant]

REACTIONS (2)
  - PHLEBITIS [None]
  - PULMONARY EMBOLISM [None]
